FAERS Safety Report 7232555-6 (Version None)
Quarter: 2011Q1

REPORT INFORMATION
  Report Type: 
  Country: None (occurrence: None)
  Receive Date: 20110112
  Receipt Date: 20110112
  Transmission Date: 20110831
  Serious: Yes (Other)
  Sender: FDA-Public Use
  Company Number: None

PATIENT
  Age: 24 Year
  Sex: Female
  Weight: 68.0396 kg

DRUGS (1)
  1. CREST PRO-HEALTH MOUTHWASH 0.07% CETYLPYRIDINIUM CHLORIDE CREST [Suspect]

REACTIONS (1)
  - TOOTH DISCOLOURATION [None]
